FAERS Safety Report 10990781 (Version 1)
Quarter: 2015Q2

REPORT INFORMATION
  Report Type: Spontaneous
  Country: JP (occurrence: JP)
  Receive Date: 20150406
  Receipt Date: 20150406
  Transmission Date: 20150821
  Serious: Yes (Death, Congenital Anomaly)
  Sender: FDA-Public Use
  Company Number: JP-DSJP-DSJ-2011-24611

PATIENT

DRUGS (2)
  1. OLMETEC TABLETS 10MG [Suspect]
     Active Substance: OLMESARTAN MEDOXOMIL
     Indication: BLOOD PRESSURE MANAGEMENT
     Dosage: EVERY
     Route: 064
  2. OLMETEC TABLETS 10MG [Suspect]
     Active Substance: OLMESARTAN MEDOXOMIL
     Indication: NEPHROPROTECTIVE THERAPY

REACTIONS (4)
  - Abortion spontaneous [None]
  - Foetal death [Fatal]
  - Potter^s syndrome [Not Recovered/Not Resolved]
  - Foetal exposure during pregnancy [Unknown]
